FAERS Safety Report 13377425 (Version 1)
Quarter: 2017Q1

REPORT INFORMATION
  Report Type: Spontaneous
  Country: GB (occurrence: GB)
  Receive Date: 20170328
  Receipt Date: 20170328
  Transmission Date: 20170429
  Serious: Yes (Life-Threatening, Other)
  Sender: FDA-Public Use
  Company Number: GB-GLAXOSMITHKLINE-GB2017042284

PATIENT
  Age: 3 Year
  Sex: Male

DRUGS (5)
  1. AMETOP [Concomitant]
     Dosage: AS DIRECTED
     Route: 065
     Dates: start: 20170315
  2. CLENIL MODULITE [Concomitant]
     Active Substance: BECLOMETHASONE DIPROPIONATE
     Dosage: 1 DF, BID
     Route: 055
     Dates: start: 20170314
  3. EMLA (LIDOCAIN + PRILOCAIN) [Concomitant]
     Dosage: AS DIRECTED
     Route: 065
     Dates: start: 20170314
  4. PIRITON [Concomitant]
     Active Substance: CHLORPHENIRAMINE MALEATE
     Dosage: 25 ML, UNK,25ML 4-6 HOURLY
     Route: 048
     Dates: start: 20170314
  5. SALBUTAMOL [Suspect]
     Active Substance: ALBUTEROL
     Indication: PRODUCT USED FOR UNKNOWN INDICATION
     Dosage: 100 ?G, UNK
     Route: 055

REACTIONS (3)
  - Dermatitis allergic [Not Recovered/Not Resolved]
  - Urticaria [Unknown]
  - Swollen tongue [Unknown]

NARRATIVE: CASE EVENT DATE: 20170310
